FAERS Safety Report 8533729-4 (Version None)
Quarter: 2012Q3

REPORT INFORMATION
  Report Type: 
  Country: None (occurrence: None)
  Receive Date: 20120724
  Receipt Date: 20120717
  Transmission Date: 20120928
  Serious: Yes (Disabling, Other)
  Sender: FDA-Public Use
  Company Number: US-CELGENEUS-163-21880-12062058

PATIENT
  Sex: Male
  Weight: 82 kg

DRUGS (8)
  1. COREG [Concomitant]
     Route: 065
  2. REVLIMID [Suspect]
     Dosage: 5 MILLIGRAM
     Route: 048
     Dates: start: 20120517, end: 20120530
  3. VALTREX [Concomitant]
     Indication: INFECTION PROPHYLAXIS
     Route: 065
  4. PRAVACHOL [Concomitant]
     Route: 065
  5. GLIPIZIDE [Concomitant]
     Route: 065
  6. METFORMIN HYDROCHLORIDE [Concomitant]
     Route: 065
  7. VFEND [Concomitant]
     Indication: INFECTION PROPHYLAXIS
     Route: 065
  8. TACROLIMUS [Concomitant]
     Indication: PROPHYLAXIS AGAINST GRAFT VERSUS HOST DISEASE
     Dosage: 10 MILLIGRAM
     Route: 065
     Dates: start: 20120201

REACTIONS (1)
  - ACUTE GRAFT VERSUS HOST DISEASE [None]
